FAERS Safety Report 5417720-2 (Version None)
Quarter: 2007Q3

REPORT INFORMATION
  Report Type: 
  Country: None (occurrence: None)
  Receive Date: 20070815
  Receipt Date: 20070815
  Transmission Date: 20080115
  Serious: Yes (Hospitalization)
  Sender: FDA-Public Use
  Company Number: None

PATIENT
  Sex: Male
  Weight: 68.0396 kg

DRUGS (6)
  1. DIOVAN [Suspect]
     Indication: HYPERTENSION
     Dosage: 80MG PO DAILY  PRIOR TO ADMISSION
     Route: 048
  2. NORVASC [Concomitant]
  3. LOPRESSOR [Concomitant]
  4. NAMENDA [Concomitant]
  5. ACTONEL [Concomitant]
  6. FOLIC ACID [Concomitant]

REACTIONS (3)
  - DEPRESSED LEVEL OF CONSCIOUSNESS [None]
  - HYPOTENSION [None]
  - LETHARGY [None]
